FAERS Safety Report 8165531-X (Version None)
Quarter: 2012Q1

REPORT INFORMATION
  Report Type: 
  Country: None (occurrence: None)
  Receive Date: 20120227
  Receipt Date: 20120217
  Transmission Date: 20120608
  Serious: No
  Sender: FDA-Public Use
  Company Number: ZA-GENZYME-CERZ-1002149

PATIENT
  Sex: Female
  Weight: 48.5 kg

DRUGS (2)
  1. CEREZYME [Suspect]
     Dosage: 60 U/KG, Q2W
     Route: 042
     Dates: start: 19950101
  2. CEREZYME [Suspect]
     Indication: GAUCHER'S DISEASE
     Dosage: 50 U/KG, QW
     Route: 042

REACTIONS (3)
  - MUSCLE SPASMS [None]
  - DYSPEPSIA [None]
  - NAUSEA [None]
